FAERS Safety Report 14358254 (Version 2)
Quarter: 2019Q3

REPORT INFORMATION
  Report Type: Spontaneous
  Country: US (occurrence: US)
  Receive Date: 20180105
  Receipt Date: 20190912
  Transmission Date: 20191004
  Serious: No
  Sender: FDA-Public Use
  Company Number: US-SA-2017SA197723

PATIENT
  Age: 34 Year
  Sex: Female
  Weight: 88.89 kg

DRUGS (1)
  1. DUPIXENT [Suspect]
     Active Substance: DUPILUMAB
     Indication: DERMATITIS ATOPIC
     Dosage: 300 MG,QOW
     Route: 058
     Dates: start: 20170901

REACTIONS (4)
  - Hot flush [Unknown]
  - Pruritus [Unknown]
  - Dermatitis atopic [Unknown]
  - Peripheral swelling [Unknown]
